FAERS Safety Report 25219230 (Version 4)
Quarter: 2025Q2

REPORT INFORMATION
  Report Type: Spontaneous
  Country: GB (occurrence: GB)
  Receive Date: 20250421
  Receipt Date: 20250515
  Transmission Date: 20250716
  Serious: Yes (Life-Threatening, Hospitalization)
  Sender: MYLAN
  Company Number: GB-MYLANLABS-2025M1003564

PATIENT
  Sex: Female

DRUGS (5)
  1. CLOZARIL [Interacting]
     Active Substance: CLOZAPINE
     Indication: Schizophrenia
  2. CLOZARIL [Interacting]
     Active Substance: CLOZAPINE
     Indication: Post-traumatic stress disorder
  3. CLOZARIL [Interacting]
     Active Substance: CLOZAPINE
     Indication: Borderline personality disorder
     Dosage: 200 MILLIGRAM, PM (TYPICALLY EVENING DOSE)
  4. CLOZARIL [Interacting]
     Active Substance: CLOZAPINE
     Dosage: 175 MILLIGRAM, PM (TYPICALLY EVENING DOSE)
     Dates: start: 202504
  5. CLOZARIL [Interacting]
     Active Substance: CLOZAPINE
     Dosage: 150 MILLIGRAM, QD

REACTIONS (6)
  - Respiratory failure [Unknown]
  - Respiratory tract infection [Unknown]
  - Obesity [Unknown]
  - Product dose omission issue [Unknown]
  - Off label use [Unknown]
  - Drug interaction [Unknown]

NARRATIVE: CASE EVENT DATE: 20250401
